FAERS Safety Report 22981713 (Version 4)
Quarter: 2023Q4

REPORT INFORMATION
  Report Type: Spontaneous
  Country: US (occurrence: US)
  Receive Date: 20230925
  Receipt Date: 20231112
  Transmission Date: 20240110
  Serious: Yes (Other)
  Sender: FDA-Public Use
  Company Number: US-PRINSTON PHARMACEUTICAL INC.-2023PRN00464

PATIENT
  Sex: Male
  Weight: 99.773 kg

DRUGS (6)
  1. METHYLPHENIDATE HYDROCHLORIDE [Suspect]
     Active Substance: METHYLPHENIDATE HYDROCHLORIDE
     Indication: Attention deficit hyperactivity disorder
     Dosage: 40 MG, 5X/DAY (EVERY 2 HOURS)
     Dates: start: 202309, end: 202309
  2. METHYLPHENIDATE HYDROCHLORIDE [Suspect]
     Active Substance: METHYLPHENIDATE HYDROCHLORIDE
     Dosage: 100 MG,
     Dates: start: 202309, end: 202309
  3. GABAPENTIN [Concomitant]
     Active Substance: GABAPENTIN
     Dosage: 600 MG, 3X/DAY
  4. AMLODIPINE [Concomitant]
     Active Substance: AMLODIPINE BESYLATE
     Dosage: 10 MG, 1X/DAY
  5. LOSARTAN [Concomitant]
     Active Substance: LOSARTAN
     Dosage: 25 MG, 1X/DAY
  6. PANTOPRAZOLE [Concomitant]
     Active Substance: PANTOPRAZOLE
     Dosage: 40 MG, 1X/DAY, IN THE AM

REACTIONS (28)
  - Schizoaffective disorder [Not Recovered/Not Resolved]
  - Bipolar disorder [Not Recovered/Not Resolved]
  - Substance abuse [Unknown]
  - Thinking abnormal [Recovered/Resolved]
  - Delusion [Unknown]
  - Drug ineffective [Recovered/Resolved]
  - Attention deficit hyperactivity disorder [Unknown]
  - Confusional state [Recovered/Resolved]
  - Mental disorder [Unknown]
  - Motor dysfunction [Unknown]
  - Neurological symptom [Unknown]
  - Memory impairment [Recovered/Resolved]
  - Balance disorder [Recovered/Resolved]
  - Speech disorder [Unknown]
  - Asthenia [Unknown]
  - Paranoia [Unknown]
  - Affective disorder [Unknown]
  - Self-medication [Unknown]
  - Stress [Unknown]
  - Blood pressure fluctuation [Unknown]
  - Anxiety [Unknown]
  - Insomnia [Unknown]
  - Mania [Unknown]
  - Psychotic disorder [Unknown]
  - Unevaluable event [Unknown]
  - Product substitution issue [Recovered/Resolved]
  - Off label use [Recovered/Resolved]
  - Incorrect dose administered [Recovered/Resolved]

NARRATIVE: CASE EVENT DATE: 20230101
